FAERS Safety Report 7117621-8 (Version None)
Quarter: 2010Q4

REPORT INFORMATION
  Report Type: 
  Country: None (occurrence: None)
  Receive Date: 20101122
  Receipt Date: 20101110
  Transmission Date: 20110411
  Serious: Yes (Hospitalization)
  Sender: FDA-Public Use
  Company Number: DE-MYLANLABS-2010S1020553

PATIENT
  Age: 78 Year
  Sex: Male
  Weight: 85 kg

DRUGS (8)
  1. ALLOPURINOL [Suspect]
     Indication: PRODUCT USED FOR UNKNOWN INDICATION
     Route: 048
  2. BENDAMUSTINE [Suspect]
     Indication: CHRONIC LYMPHOCYTIC LEUKAEMIA
     Route: 042
     Dates: start: 20100119, end: 20100318
  3. RITUXIMAB [Suspect]
     Indication: CHRONIC LYMPHOCYTIC LEUKAEMIA
     Route: 042
     Dates: start: 20100119, end: 20100318
  4. VERGENTAN [Suspect]
     Indication: NAUSEA
     Route: 048
  5. PREDNISOLONE [Concomitant]
     Indication: NAUSEA
     Route: 048
  6. RANITIDINE HCL [Concomitant]
     Indication: NAUSEA
     Route: 042
  7. CLEMASTINE FUMARATE [Concomitant]
     Indication: NAUSEA
     Route: 042
  8. KEVATRIL [Concomitant]
     Indication: NAUSEA
     Route: 042

REACTIONS (2)
  - INTERSTITIAL LUNG DISEASE [None]
  - SEPSIS [None]
